FAERS Safety Report 16444047 (Version 1)
Quarter: 2019Q2

REPORT INFORMATION
  Report Type: Spontaneous
  Country: US (occurrence: US)
  Receive Date: 20190618
  Receipt Date: 20190618
  Transmission Date: 20190711
  Serious: No
  Sender: FDA-Public Use
  Company Number: US-TEVA-2019-US-1061669

PATIENT
  Age: 32 Year
  Sex: Male

DRUGS (1)
  1. TEVA CHLORDIAZEPOXIDE HYDROCHLORIDE [Suspect]
     Active Substance: CHLORDIAZEPOXIDE HYDROCHLORIDE
     Indication: WITHDRAWAL SYNDROME
     Dates: end: 20190516

REACTIONS (1)
  - Drug screen positive [Unknown]
